FAERS Safety Report 6460144-X (Version None)
Quarter: 2009Q4

REPORT INFORMATION
  Report Type: 
  Country: None (occurrence: None)
  Receive Date: 20091129
  Receipt Date: 20091120
  Transmission Date: 20100525
  Serious: Yes (Life-Threatening, Hospitalization)
  Sender: FDA-Public Use
  Company Number: DE-ELI_LILLY_AND_COMPANY-DE200911000354

PATIENT
  Sex: Male
  Weight: 95.5 kg

DRUGS (17)
  1. GEMZAR [Suspect]
     Indication: BILE DUCT CANCER
     Dosage: 1000 MG/M2, UNK
     Route: 042
     Dates: start: 20090301, end: 20090901
  2. PANTOZOL [Concomitant]
     Dosage: 40 MG, EACH EVENING
  3. RAMIPRIL [Concomitant]
     Dosage: 1/2 DF, EACH MORNING
  4. CITALOPRAM HYDROBROMIDE [Concomitant]
     Dosage: UNK, EACH MORNING
  5. CALCILAC /00944201/ [Concomitant]
     Dosage: UNK, EACH MORNING
  6. PREDNISOLONE [Concomitant]
  7. MCP [Concomitant]
     Dosage: UNK, 3/D
  8. NOVALGIN [Concomitant]
  9. HYDROCHLOROTHIAZIDE [Concomitant]
     Dosage: 25 D/F, EACH MORNING
  10. NORVASC [Concomitant]
     Dosage: 10 MG, EACH MORNING
  11. EBRANTIL [Concomitant]
     Dosage: 60 D/F, 3/D
  12. ERGENYL [Concomitant]
     Dosage: 1 G, 2/D
  13. L-THYROXIN [Concomitant]
     Dosage: 25 UG, DAILY (1/D)
  14. DEXAMETHASONE TAB [Concomitant]
     Dosage: 8 MG, 2/D
  15. NOVAMINSULFON [Concomitant]
     Dosage: UNK, 4/D
  16. SYMPAL [Concomitant]
     Dosage: 25 MG, UNK
  17. IMBUN [Concomitant]
     Dosage: 850 MG, UNK

REACTIONS (3)
  - CONVULSION [None]
  - ENCEPHALOPATHY [None]
  - THROMBOTIC THROMBOCYTOPENIC PURPURA [None]
